FAERS Safety Report 7592051-3 (Version None)
Quarter: 2011Q3

REPORT INFORMATION
  Report Type: 
  Country: None (occurrence: None)
  Receive Date: 20110706
  Receipt Date: 20110701
  Transmission Date: 20111222
  Serious: Yes (Disabling)
  Sender: FDA-Public Use
  Company Number: DE-SANOFI-AVENTIS-2011SA041698

PATIENT
  Age: 41 Year
  Sex: Female
  Weight: 77 kg

DRUGS (1)
  1. FEXOFENADIN WINTHROP [Suspect]
     Dosage: 1 - 3 TABLETS DAILY
     Route: 048
     Dates: start: 20100601, end: 20110601

REACTIONS (1)
  - DEPRESSION [None]
